FAERS Safety Report 7632903-9 (Version None)
Quarter: 2011Q3

REPORT INFORMATION
  Report Type: 
  Country: None (occurrence: None)
  Receive Date: 20110725
  Receipt Date: 20110720
  Transmission Date: 20111222
  Serious: Yes (Hospitalization)
  Sender: FDA-Public Use
  Company Number: DE-SANOFI-AVENTIS-2011SA046152

PATIENT
  Age: 83 Year
  Sex: Male
  Weight: 80 kg

DRUGS (5)
  1. NOVALGIN [Concomitant]
     Indication: BACK PAIN
     Route: 048
  2. ASPIRIN [Concomitant]
     Route: 048
  3. TILIDINE [Concomitant]
     Indication: NECK PAIN
     Route: 048
  4. CLOPIDOGREL [Concomitant]
     Route: 048
  5. MULTAQ [Suspect]
     Indication: ATRIAL FIBRILLATION
     Route: 048
     Dates: start: 20100101, end: 20110103

REACTIONS (3)
  - GAMMA-GLUTAMYLTRANSFERASE INCREASED [None]
  - DELIRIUM [None]
  - HALLUCINATION, VISUAL [None]
